FAERS Safety Report 8278490-6 (Version None)
Quarter: 2012Q2

REPORT INFORMATION
  Report Type: 
  Country: None (occurrence: None)
  Receive Date: 20120412
  Receipt Date: 20120223
  Transmission Date: 20120825
  Serious: No
  Sender: FDA-Public Use
  Company Number: US-ASTRAZENECA-2012SE13062

PATIENT
  Age: 51 Year
  Sex: Male

DRUGS (3)
  1. NEXIUM [Suspect]
     Route: 048
  2. PANTOPRAZOLE [Concomitant]
  3. PROTONIX [Concomitant]

REACTIONS (4)
  - DRUG DOSE OMISSION [None]
  - OESOPHAGEAL STENOSIS [None]
  - DYSPHAGIA [None]
  - REGURGITATION [None]
